FAERS Safety Report 6046151-X (Version None)
Quarter: 2009Q1

REPORT INFORMATION
  Report Type: 
  Country: None (occurrence: None)
  Receive Date: 20090122
  Receipt Date: 20090115
  Transmission Date: 20090719
  Serious: Yes (Hospitalization)
  Sender: FDA-Public Use
  Company Number: FR-JNJFOC-20090103021

PATIENT
  Sex: Female

DRUGS (20)
  1. HALDOL [Suspect]
     Indication: DRUG USE FOR UNKNOWN INDICATION
  2. DITROPAN [Suspect]
     Indication: DRUG USE FOR UNKNOWN INDICATION
  3. LYRICA [Suspect]
  4. LYRICA [Suspect]
     Indication: EPILEPSY
  5. PARKINANE [Suspect]
     Indication: PARKINSON'S DISEASE
     Route: 048
  6. LOXAPINE HCL [Suspect]
     Indication: DRUG USE FOR UNKNOWN INDICATION
     Route: 048
  7. CYMBALTA [Suspect]
     Indication: DRUG USE FOR UNKNOWN INDICATION
  8. ACETAMINOPHEN [Concomitant]
  9. LEVOTHYROX [Concomitant]
     Route: 048
  10. PLAVIX [Concomitant]
  11. TERALITHE [Concomitant]
  12. MESTINON [Concomitant]
     Indication: ILEUS PARALYTIC
  13. NEOSTIGMINE [Concomitant]
     Route: 042
  14. PARAPSYLLIUM [Concomitant]
     Route: 048
  15. NULYTELY [Concomitant]
     Route: 048
  16. SPAGULAX [Concomitant]
  17. DEPAKENE [Concomitant]
     Route: 048
  18. NOCTAMIDE [Concomitant]
  19. NOCTAMIDE [Concomitant]
  20. SERESTA [Concomitant]
     Route: 048

REACTIONS (1)
  - SUBILEUS [None]
